FAERS Safety Report 8059778-0 (Version None)
Quarter: 2012Q1

REPORT INFORMATION
  Report Type: 
  Country: None (occurrence: None)
  Receive Date: 20120120
  Receipt Date: 20120119
  Transmission Date: 20120608
  Serious: Yes (Death)
  Sender: FDA-Public Use
  Company Number: PHFR2011IE007192

PATIENT
  Sex: Male

DRUGS (7)
  1. EFFEXOR XR [Concomitant]
     Indication: SCHIZOPHRENIA
     Dosage: 150 MG, MANE
  2. OLANZAPINE [Concomitant]
     Indication: SCHIZOPHRENIA
     Dosage: 30 MG, NOCTE
  3. ABILIFY [Concomitant]
     Indication: SCHIZOPHRENIA
     Dosage: 10 MG, MANE
  4. CLOZARIL [Suspect]
     Indication: SCHIZOPHRENIA
     Route: 048
     Dates: start: 20110825
  5. ZOPICLONE [Concomitant]
     Indication: SCHIZOPHRENIA
     Dosage: 11.25 MG, NOCTE
  6. CLOZARIL [Suspect]
     Dosage: 250 MG, NOCTE
     Route: 048
  7. PROCYCLIDINE HYDROCHLORIDE 2MG TAB [Concomitant]
     Indication: SCHIZOPHRENIA
     Dosage: 5 MG, MANE

REACTIONS (1)
  - DEATH [None]
